FAERS Safety Report 5611643-1 (Version None)
Quarter: 2008Q1

REPORT INFORMATION
  Report Type: 
  Country: None (occurrence: None)
  Receive Date: 20080201
  Receipt Date: 20080129
  Transmission Date: 20080703
  Serious: Yes (Disabling)
  Sender: FDA-Public Use
  Company Number: JP-PFIZER INC-2008009378

PATIENT
  Age: 42 Year
  Sex: Male

DRUGS (5)
  1. ZOLOFT [Suspect]
     Indication: DEPRESSION
     Route: 048
  2. AMOXAN [Concomitant]
     Route: 048
  3. ANAFRANIL [Concomitant]
  4. REQUIP [Concomitant]
     Route: 048
  5. BETA BLOCKING AGENTS [Concomitant]

REACTIONS (1)
  - CONGESTIVE CARDIOMYOPATHY [None]
